FAERS Safety Report 14818835 (Version 1)
Quarter: 2018Q2

REPORT INFORMATION
  Report Type: Spontaneous
  Country: US (occurrence: US)
  Receive Date: 20180427
  Receipt Date: 20180427
  Transmission Date: 20180711
  Serious: Yes (Other)
  Sender: FDA-Public Use
  Company Number: US-TEVA-2018-US-885460

PATIENT
  Age: 62 Year
  Sex: Male

DRUGS (1)
  1. ZOLPIDEM [Suspect]
     Active Substance: ZOLPIDEM\ZOLPIDEM TARTRATE
     Indication: SLEEP DISORDER
     Dates: start: 2015

REACTIONS (3)
  - Depression suicidal [Unknown]
  - Disturbance in attention [Unknown]
  - Amnesia [Unknown]

NARRATIVE: CASE EVENT DATE: 2015
